FAERS Safety Report 17158865 (Version 1)
Quarter: 2019Q4

REPORT INFORMATION
  Report Type: Report from Study
  Country: CH (occurrence: US)
  Receive Date: 20191216
  Receipt Date: 20191216
  Transmission Date: 20200122
  Serious: Yes (Other)
  Sender: FDA-Public Use
  Company Number: US-BAYER-2019-221952

PATIENT
  Age: 40 Year
  Sex: Female

DRUGS (1)
  1. ALKA-SELTZER [Suspect]
     Active Substance: ANHYDROUS CITRIC ACID\ASPIRIN\SODIUM BICARBONATE
     Dosage: UNK

REACTIONS (4)
  - Conjunctival haemorrhage [Unknown]
  - Capillary fragility [Unknown]
  - Vomiting [Unknown]
  - Drug hypersensitivity [Unknown]
